FAERS Safety Report 8071459-6 (Version None)
Quarter: 2012Q1

REPORT INFORMATION
  Report Type: 
  Country: None (occurrence: None)
  Receive Date: 20120125
  Receipt Date: 20120112
  Transmission Date: 20120608
  Serious: Yes (Other)
  Sender: FDA-Public Use
  Company Number: TR-MYLANLABS-2012S1001124

PATIENT
  Age: 16 Year
  Sex: Male

DRUGS (6)
  1. IMMUNE GLOBULIN NOS [Suspect]
     Indication: FEBRILE NEUTROPENIA
     Route: 050
  2. CEFTAZIDIME [Suspect]
     Indication: FEBRILE NEUTROPENIA
     Dosage: 150 MG/KG/DAY
     Route: 065
  3. MEROPENEM [Suspect]
     Indication: FEBRILE NEUTROPENIA
     Dosage: 100 MG/KG/DAY
     Route: 065
  4. VANCOMYCIN [Suspect]
     Indication: FEBRILE NEUTROPENIA
     Dosage: 60 MG/KG/DAY
     Route: 065
  5. AMPHOTERICIN B [Concomitant]
     Indication: FEBRILE NEUTROPENIA
     Dosage: 1.5 MG/KG/DAY
     Route: 065
  6. AMIKACIN [Suspect]
     Indication: FEBRILE NEUTROPENIA
     Dosage: 15 MG/KG/DAY
     Route: 065

REACTIONS (1)
  - SERUM SICKNESS-LIKE REACTION [None]
